FAERS Safety Report 25107699 (Version 2)
Quarter: 2025Q4

REPORT INFORMATION
  Report Type: Report from Study
  Country: US (occurrence: US)
  Receive Date: 20250322
  Receipt Date: 20251006
  Transmission Date: 20260117
  Serious: Yes (Other)
  Sender: ABBVIE
  Company Number: US-ABBVIE-6180909

PATIENT
  Age: 58 Year
  Sex: Male

DRUGS (1)
  1. SKYRIZI [Suspect]
     Active Substance: RISANKIZUMAB-RZAA
     Indication: Psoriasis
     Route: 058
     Dates: start: 20220726

REACTIONS (3)
  - Oral surgery [Unknown]
  - Arthritis [Recovering/Resolving]
  - Carpal tunnel syndrome [Recovering/Resolving]

NARRATIVE: CASE EVENT DATE: 20250201
